FAERS Safety Report 17172010 (Version 1)
Quarter: 2019Q4

REPORT INFORMATION
  Report Type: Report from Study
  Country: CA (occurrence: CA)
  Receive Date: 20191219
  Receipt Date: 20191219
  Transmission Date: 20200122
  Serious: Yes (Other)
  Sender: FDA-Public Use
  Company Number: NVSC2019CA029210

PATIENT

DRUGS (2)
  1. DABRAFENIB [Suspect]
     Active Substance: DABRAFENIB
     Indication: NEUROFIBROMA
     Route: 048
  2. TRAMETINIB [Suspect]
     Active Substance: TRAMETINIB
     Indication: NEUROFIBROMA
     Route: 048

REACTIONS (1)
  - Dermatitis acneiform [Recovered/Resolved]
